FAERS Safety Report 21395107 (Version 1)
Quarter: 2022Q3

REPORT INFORMATION
  Report Type: Spontaneous
  Country: CN (occurrence: CN)
  Receive Date: 20220930
  Receipt Date: 20220930
  Transmission Date: 20221027
  Serious: Yes (Other)
  Sender: FDA-Public Use
  Company Number: CN-GALDERMA-CN2022013417

PATIENT
  Age: 41 Year
  Sex: Female
  Weight: 53 kg

DRUGS (2)
  1. BENZOYL PEROXIDE [Suspect]
     Active Substance: BENZOYL PEROXIDE
     Indication: Acne
     Dosage: 0.15 GRAM, BID
     Route: 061
     Dates: start: 20220905, end: 20220908
  2. DOXYCYCLINE HYCLATE [Concomitant]
     Active Substance: DOXYCYCLINE HYCLATE
     Indication: Acne
     Dosage: 0.1 GRAM, BID
     Route: 048
     Dates: start: 20220905, end: 20220921

REACTIONS (5)
  - Application site pain [Recovering/Resolving]
  - Dermatitis contact [Recovering/Resolving]
  - Complex regional pain syndrome [Recovered/Resolved]
  - Flushing [Recovering/Resolving]
  - Application site erythema [Recovering/Resolving]

NARRATIVE: CASE EVENT DATE: 20220901
